FAERS Safety Report 7982534-6 (Version None)
Quarter: 2011Q4

REPORT INFORMATION
  Report Type: 
  Country: None (occurrence: None)
  Receive Date: 20111215
  Receipt Date: 20111214
  Transmission Date: 20120403
  Serious: Yes (Hospitalization)
  Sender: FDA-Public Use
  Company Number: PHHO2010DE03404

PATIENT
  Sex: Male
  Weight: 75 kg

DRUGS (19)
  1. BLINDED NO TREATMENT RECEIVED [Suspect]
     Indication: TUBEROUS SCLEROSIS
     Dosage: DOUBLE BLIND
     Route: 048
     Dates: start: 20091216
  2. IBUPROFEN [Suspect]
  3. COLCHICINE [Concomitant]
     Indication: GOUT
  4. CALCIUM [Concomitant]
     Indication: BLOOD CALCIUM DECREASED
  5. FUROSEMIDE [Suspect]
     Dosage: UNK
     Dates: start: 20100225
  6. FERRO [Concomitant]
     Indication: IRON DEFICIENCY
  7. MAGNESIUM SULFATE [Concomitant]
     Indication: BLOOD MAGNESIUM DECREASED
  8. ASPIRIN [Concomitant]
  9. ALLOPURINOL [Concomitant]
     Indication: HYPERURICAEMIA
  10. TORSEMIDE [Concomitant]
     Indication: RENAL FAILURE ACUTE
  11. PREDNISOLONE [Concomitant]
     Indication: GOUT
  12. VOLTAREN [Concomitant]
     Indication: GOUT
  13. ACYCLOVIR [Concomitant]
     Indication: ORAL HERPES
  14. SIMVASTATIN [Concomitant]
     Indication: HYPERLIPIDAEMIA
  15. AFINITOR [Suspect]
     Indication: TUBEROUS SCLEROSIS
     Dosage: DOUBLE BLIND
     Route: 048
     Dates: start: 20091216
  16. BLINDED PLACEBO [Suspect]
     Indication: TUBEROUS SCLEROSIS
     Dosage: DOUBLE BLIND
     Route: 048
     Dates: start: 20091216
  17. CHLORHEXIDINE GLUCONATE [Concomitant]
     Indication: ECZEMA
  18. NOVAMINSULFON [Concomitant]
     Indication: ARTHRALGIA
  19. FRAGMIN [Concomitant]
     Indication: THROMBOSIS PROPHYLAXIS

REACTIONS (11)
  - GOUT [None]
  - HYPERKALAEMIA [None]
  - SWELLING [None]
  - BLOOD CREATININE INCREASED [None]
  - PAIN [None]
  - RENAL FAILURE ACUTE [None]
  - OEDEMA [None]
  - ACIDOSIS [None]
  - HYPERURICAEMIA [None]
  - JOINT EFFUSION [None]
  - ANAEMIA [None]
